FAERS Safety Report 8400750-6 (Version None)
Quarter: 2012Q2

REPORT INFORMATION
  Report Type: 
  Country: None (occurrence: None)
  Receive Date: 20120531
  Receipt Date: 20120525
  Transmission Date: 20120825
  Serious: Yes (Other)
  Sender: FDA-Public Use
  Company Number: FR-MERCK-1205FRA00099

PATIENT
  Age: 46 Year
  Sex: Female
  Weight: 67 kg

DRUGS (2)
  1. ISENTRESS [Suspect]
     Indication: HIV INFECTION
     Route: 048
     Dates: start: 20100929
  2. ABACAVIR SULFATE AND LAMIVUDINE [Concomitant]
     Indication: HIV INFECTION
     Route: 048
     Dates: start: 20100929

REACTIONS (9)
  - PHLEBITIS [None]
  - BURSA CALCIFICATION [None]
  - TENDONITIS [None]
  - VITAMIN D DEFICIENCY [None]
  - DIABETES MELLITUS [None]
  - URINARY TRACT INFECTION [None]
  - HYPERTRIGLYCERIDAEMIA [None]
  - ALOPECIA [None]
  - CYTOLYTIC HEPATITIS [None]
